FAERS Safety Report 4812550-4 (Version None)
Quarter: 2005Q4

REPORT INFORMATION
  Report Type: 
  Country: None (occurrence: None)
  Receive Date: 20051028
  Receipt Date: 20041029
  Transmission Date: 20060501
  Serious: No
  Sender: FDA-Public Use
  Company Number: US-GLAXOSMITHKLINE-A0531855A

PATIENT
  Age: 10 Year
  Sex: Male
  Weight: 67.3 kg

DRUGS (3)
  1. ADVAIR DISKUS 100/50 [Suspect]
     Indication: ASTHMA
     Dates: start: 20040521, end: 20040526
  2. ALBUTEROL [Concomitant]
  3. LORATADINE [Concomitant]

REACTIONS (2)
  - DISTURBANCE IN ATTENTION [None]
  - DIZZINESS [None]
